FAERS Safety Report 10191781 (Version 1)
Quarter: 2014Q2

REPORT INFORMATION
  Report Type: Spontaneous
  Country: US (occurrence: US)
  Receive Date: 20140523
  Receipt Date: 20140523
  Transmission Date: 20141212
  Serious: No
  Sender: FDA-Public Use
  Company Number: US-BAYER-2014-076462

PATIENT
  Age: 85 Year
  Sex: Female
  Weight: 65.76 kg

DRUGS (4)
  1. ALEVE CAPLET [Suspect]
     Indication: BACK PAIN
     Dosage: 2 DF, PRN
     Route: 048
  2. BAYER ASPIRIN REGIMEN ADULT LOW STRENGTH [Concomitant]
     Route: 048
  3. ZOCOR [Concomitant]
  4. PREVACID [Concomitant]

REACTIONS (1)
  - Drug ineffective [None]
